FAERS Safety Report 6417462-0 (Version None)
Quarter: 2009Q4

REPORT INFORMATION
  Report Type: 
  Country: None (occurrence: None)
  Receive Date: 20091028
  Receipt Date: 20090930
  Transmission Date: 20100525
  Serious: Yes (Hospitalization)
  Sender: FDA-Public Use
  Company Number: US-BAYER-200918546NA

PATIENT
  Age: 63 Year
  Sex: Female

DRUGS (5)
  1. BETASERON [Suspect]
     Indication: RELAPSING-REMITTING MULTIPLE SCLEROSIS
     Dosage: TOTAL DAILY DOSE: 8 MIU
     Route: 058
     Dates: start: 19950101, end: 20050805
  2. COPAXONE [Concomitant]
     Dates: start: 20050901, end: 20051001
  3. TYSABRI [Concomitant]
     Dates: start: 20081001
  4. ARICEPT [Concomitant]
  5. LIPITOR [Concomitant]

REACTIONS (2)
  - ABASIA [None]
  - ANTIBODY TEST POSITIVE [None]
